FAERS Safety Report 17146150 (Version 2)
Quarter: 2020Q1

REPORT INFORMATION
  Report Type: Report from Study
  Country: CN (occurrence: CN)
  Receive Date: 20191212
  Receipt Date: 20200127
  Transmission Date: 20200409
  Serious: Yes (Other)
  Sender: FDA-Public Use
  Company Number: CN-JNJFOC-20191206553

PATIENT
  Age: 4 Year
  Sex: Female

DRUGS (2)
  1. SPORANOX [Suspect]
     Active Substance: ITRACONAZOLE
     Indication: PULMONARY MYCOSIS
     Dosage: ITRACONAZOLE INJECTION WAS DISSOLVED IN 50 ML OF 0.9% SODIUM CHLORIDE INJECTION.
     Route: 041
     Dates: start: 20161229
  2. VINCRISTINE [Interacting]
     Active Substance: VINCRISTINE
     Indication: ACUTE LYMPHOCYTIC LEUKAEMIA
     Route: 065
     Dates: start: 20161227

REACTIONS (3)
  - Ileus paralytic [Unknown]
  - Transaminases increased [Unknown]
  - Drug interaction [Unknown]
